FAERS Safety Report 22325427 (Version 2)
Quarter: 2023Q2

REPORT INFORMATION
  Report Type: Report from Study
  Country: BE (occurrence: BE)
  Receive Date: 20230516
  Receipt Date: 20230518
  Transmission Date: 20230721
  Serious: Yes (Hospitalization)
  Sender: FDA-Public Use
  Company Number: BE-JNJFOC-20211113183

PATIENT
  Age: 52 Year
  Sex: Female
  Weight: 82.8 kg

DRUGS (15)
  1. TECLISTAMAB [Suspect]
     Active Substance: TECLISTAMAB
     Indication: Plasma cell myeloma
     Route: 058
     Dates: start: 20210428, end: 20211019
  2. POMALIDOMIDE [Suspect]
     Active Substance: POMALIDOMIDE
     Indication: Plasma cell myeloma
     Route: 048
     Dates: start: 20210511, end: 20211025
  3. DARATUMUMAB [Suspect]
     Active Substance: DARATUMUMAB
     Indication: Plasma cell myeloma
     Dosage: ALSO REPORTED DOSE AS 15 ML
     Route: 058
     Dates: start: 20210427, end: 20211019
  4. ASPIRIN [Concomitant]
     Active Substance: ASPIRIN
     Indication: Thrombosis prophylaxis
     Route: 048
     Dates: start: 20180706
  5. ACYCLOVIR [Concomitant]
     Active Substance: ACYCLOVIR
     Indication: Prophylaxis
     Route: 048
     Dates: start: 20210428
  6. HOMEOPLASMINE [Concomitant]
     Indication: Product used for unknown indication
     Route: 062
     Dates: start: 20210903
  7. COVID-19 VACCINE [Concomitant]
     Indication: COVID-19 prophylaxis
     Dates: start: 202103, end: 202103
  8. COVID-19 VACCINE [Concomitant]
     Dates: start: 202103, end: 202103
  9. COVID-19 VACCINE [Concomitant]
     Dosage: BOOSTER
     Dates: start: 20211006, end: 20211006
  10. ENOXAPARIN [Concomitant]
     Active Substance: ENOXAPARIN
     Indication: Anticoagulant therapy
     Route: 058
     Dates: start: 20211102, end: 20211129
  11. PANTOPRAZOLE [Concomitant]
     Active Substance: PANTOPRAZOLE
     Indication: Gastrointestinal disorder therapy
     Route: 048
     Dates: start: 20211102, end: 20220524
  12. CEFTRIAXONE [Concomitant]
     Active Substance: CEFTRIAXONE
     Indication: Antibiotic prophylaxis
     Route: 042
     Dates: start: 20211103, end: 20211104
  13. POTASSIUM GLUCONATE [Concomitant]
     Active Substance: POTASSIUM GLUCONATE
     Indication: Prophylaxis
     Route: 048
     Dates: start: 20211105, end: 20211108
  14. FILGRASTIM [Concomitant]
     Active Substance: FILGRASTIM
     Indication: Neutropenia
     Route: 042
     Dates: start: 20220104, end: 20220107
  15. KALIUMGLUCONAT [Concomitant]
     Indication: Product used for unknown indication
     Route: 048
     Dates: start: 20211105, end: 20211108

REACTIONS (1)
  - COVID-19 pneumonia [Recovered/Resolved]

NARRATIVE: CASE EVENT DATE: 20211025
